FAERS Safety Report 25213598 (Version 3)
Quarter: 2025Q2

REPORT INFORMATION
  Report Type: Report from Study
  Country: CA (occurrence: CA)
  Receive Date: 20250418
  Receipt Date: 20250522
  Transmission Date: 20250717
  Serious: Yes (Hospitalization, Other)
  Sender: TAKEDA
  Company Number: CA-TAKEDA-2025TUS035671

PATIENT
  Sex: Female

DRUGS (22)
  1. VEDOLIZUMAB [Suspect]
     Active Substance: VEDOLIZUMAB
     Indication: Colitis ulcerative
  2. VEDOLIZUMAB [Suspect]
     Active Substance: VEDOLIZUMAB
     Indication: Colitis ulcerative
     Dosage: 108 MILLIGRAM, Q2WEEKS
     Dates: start: 20250422
  3. AMLODIPINE [Concomitant]
     Active Substance: AMLODIPINE BESYLATE
  4. AMOXICILLIN\CLAVULANATE POTASSIUM [Concomitant]
     Active Substance: AMOXICILLIN\CLAVULANATE POTASSIUM
  5. DOMPERIDONE [Concomitant]
     Active Substance: DOMPERIDONE
  6. DULOXETINE [Concomitant]
     Active Substance: DULOXETINE
  7. GABAPENTIN [Concomitant]
     Active Substance: GABAPENTIN
  8. BASAGLAR [Concomitant]
     Active Substance: INSULIN GLARGINE
     Dosage: 7 INTERNATIONAL UNIT, QD
  9. APIDRA [Concomitant]
     Active Substance: INSULIN GLULISINE
     Dosage: 18 INTERNATIONAL UNIT, TID
  10. LOSARTAN [Concomitant]
     Active Substance: LOSARTAN
  11. PREDNISONE [Concomitant]
     Active Substance: PREDNISONE
  12. RABEPRAZOLE [Concomitant]
     Active Substance: RABEPRAZOLE
  13. ROSUVASTATIN [Concomitant]
     Active Substance: ROSUVASTATIN
  14. SERTRALINE [Concomitant]
     Active Substance: SERTRALINE HYDROCHLORIDE
  15. TACROLIMUS [Concomitant]
     Active Substance: TACROLIMUS
  16. VITAMIN D [Concomitant]
     Active Substance: VITAMIN D NOS
  17. TYLENOL [Concomitant]
     Active Substance: ACETAMINOPHEN
  18. HYDROXYZINE [Concomitant]
     Active Substance: HYDROXYZINE HYDROCHLORIDE
  19. LOPERAMIDE [Concomitant]
     Active Substance: LOPERAMIDE
  20. MELATONIN [Concomitant]
     Active Substance: MELATONIN
  21. NYSTATIN [Concomitant]
     Active Substance: NYSTATIN
  22. ALBUTEROL [Concomitant]
     Active Substance: ALBUTEROL

REACTIONS (5)
  - Cholangitis sclerosing [Recovering/Resolving]
  - Influenza [Recovering/Resolving]
  - Inflammation [Unknown]
  - Infection [Unknown]
  - Influenza like illness [Unknown]
